FAERS Safety Report 4978347-X (Version None)
Quarter: 2006Q2

REPORT INFORMATION
  Report Type: 
  Country: None (occurrence: None)
  Receive Date: 20060420
  Receipt Date: 20060410
  Transmission Date: 20061013
  Serious: Yes (Other)
  Sender: FDA-Public Use
  Company Number: US-BRISTOL-MYERS SQUIBB COMPANY-13342837

PATIENT
  Sex: Female

DRUGS (1)
  1. PARAPLATIN [Suspect]
     Route: 042

REACTIONS (1)
  - CENTRAL PONTINE MYELINOLYSIS [None]
